FAERS Safety Report 13886084 (Version 1)
Quarter: 2017Q3

REPORT INFORMATION
  Report Type: Spontaneous
  Country: CO (occurrence: CO)
  Receive Date: 20170821
  Receipt Date: 20170821
  Transmission Date: 20171127
  Serious: Yes (Other)
  Sender: FDA-Public Use
  Company Number: CO-BAXTER-2017BAX030291

PATIENT
  Age: 35 Year
  Sex: Male

DRUGS (1)
  1. SEVOFLURANO [Suspect]
     Active Substance: SEVOFLURANE
     Indication: ANAESTHESIA PROCEDURE
     Route: 055

REACTIONS (2)
  - PCO2 increased [Recovered/Resolved]
  - Oxygen saturation decreased [Recovered/Resolved]
